FAERS Safety Report 14779630 (Version 3)
Quarter: 2018Q2

REPORT INFORMATION
  Report Type: Report from Study
  Country: US (occurrence: US)
  Receive Date: 20180419
  Receipt Date: 20180628
  Transmission Date: 20180711
  Serious: Yes (Other)
  Sender: FDA-Public Use
  Company Number: US-PFIZER INC-2017547374

PATIENT
  Age: 74 Year
  Sex: Female

DRUGS (3)
  1. IBRANCE [Suspect]
     Active Substance: PALBOCICLIB
     Dosage: 125 MG, CYCLIC (DAILY FOR 21 DAYS OF 28-DAY CYCLE) (DAILY/21 DAYS ON AND 7DAYS OFF)
     Route: 048
     Dates: start: 20180328, end: 201804
  2. IBRANCE [Suspect]
     Active Substance: PALBOCICLIB
     Dosage: 100 MG, CYCLIC (DAILY/21 DAYS ON AND 7DAYS OFF)
     Route: 048
     Dates: start: 20180426, end: 20180622
  3. IBRANCE [Suspect]
     Active Substance: PALBOCICLIB
     Indication: BREAST CANCER FEMALE
     Dosage: 125 MG, CYCLIC (DAILY FOR 21 DAYS OF 28-DAY CYCLE)
     Route: 048
     Dates: start: 20171221, end: 20180226

REACTIONS (5)
  - Neoplasm progression [Unknown]
  - Dyspnoea [Unknown]
  - Bone marrow failure [Unknown]
  - Leukopenia [Not Recovered/Not Resolved]
  - Deep vein thrombosis [Unknown]

NARRATIVE: CASE EVENT DATE: 2018
